FAERS Safety Report 4642015-4 (Version None)
Quarter: 2005Q2

REPORT INFORMATION
  Report Type: 
  Country: None (occurrence: None)
  Receive Date: 20050321
  Receipt Date: 20050225
  Transmission Date: 20051028
  Serious: Yes (Hospitalization)
  Sender: FDA-Public Use
  Company Number: 024-05

PATIENT
  Age: 28 Year
  Sex: Male
  Weight: 75.2971 kg

DRUGS (2)
  1. MIRTAZAPINE [Suspect]
     Indication: DEPRESSION
     Dosage: 15 MG ONCE DAILY PO
     Route: 048
  2. MIRTAZAPINE [Suspect]
     Indication: DYSTONIA
     Dosage: 15 MG ONCE DAILY PO
     Route: 048

REACTIONS (3)
  - DIZZINESS [None]
  - FALL [None]
  - LOSS OF CONSCIOUSNESS [None]
